FAERS Safety Report 19267197 (Version 1)
Quarter: 2021Q2

REPORT INFORMATION
  Report Type: Spontaneous
  Country: US (occurrence: US)
  Receive Date: 20210518
  Receipt Date: 20210518
  Transmission Date: 20210717
  Serious: Yes (Hospitalization, Other)
  Sender: FDA-Public Use
  Company Number: US-ONCOPEPPR-00025

PATIENT
  Sex: Male

DRUGS (1)
  1. MELPHALAN FLUFENAMIDE [Suspect]
     Active Substance: MELPHALAN FLUFENAMIDE
     Indication: PLASMA CELL MYELOMA
     Dosage: TIME INTERVAL: TOTAL
     Route: 042
     Dates: start: 20210409, end: 20210409

REACTIONS (1)
  - Renal failure [Unknown]

NARRATIVE: CASE EVENT DATE: 20210416
